FAERS Safety Report 7386454-X (Version None)
Quarter: 2011Q1

REPORT INFORMATION
  Report Type: 
  Country: None (occurrence: None)
  Receive Date: 20110331
  Receipt Date: 20110325
  Transmission Date: 20110831
  Serious: Yes (Hospitalization)
  Sender: FDA-Public Use
  Company Number: NL-BAXTER-2010BH006223

PATIENT
  Age: 5 Year
  Sex: Female

DRUGS (6)
  1. GAMMAGARD S/D [Suspect]
     Route: 042
     Dates: start: 20110106, end: 20110106
  2. GAMMAGARD S/D [Suspect]
     Indication: GUILLAIN-BARRE SYNDROME
     Route: 042
     Dates: start: 20091126, end: 20091126
  3. GAMMAGARD S/D [Suspect]
     Route: 042
  4. GAMMAGARD S/D [Suspect]
     Route: 042
     Dates: start: 20110106, end: 20110106
  5. PREDNISONE [Concomitant]
  6. GAMMAGARD S/D [Suspect]
     Route: 042
     Dates: start: 20091126, end: 20091126

REACTIONS (3)
  - PNEUMONIA [None]
  - PYREXIA [None]
  - ASTHENIA [None]
